FAERS Safety Report 7337713-8 (Version None)
Quarter: 2011Q1

REPORT INFORMATION
  Report Type: 
  Country: None (occurrence: None)
  Receive Date: 20110210
  Receipt Date: 20110107
  Transmission Date: 20110831
  Serious: Yes (Other)
  Sender: FDA-Public Use
  Company Number: 111262

PATIENT
  Age: 51 Year
  Sex: Male

DRUGS (1)
  1. DAUNORUBICIN HCL [Suspect]
     Dosage: 116MG QD IV
     Route: 042
     Dates: start: 20090514, end: 20090516

REACTIONS (2)
  - VASCULITIS [None]
  - ANAPHYLACTOID REACTION [None]
